FAERS Safety Report 6827756-2 (Version None)
Quarter: 2010Q3

REPORT INFORMATION
  Report Type: 
  Country: None (occurrence: None)
  Receive Date: 20100709
  Receipt Date: 20100628
  Transmission Date: 20110219
  Serious: No
  Sender: FDA-Public Use
  Company Number: B0612854A

PATIENT
  Sex: Female
  Weight: 51 kg

DRUGS (5)
  1. RELENZA [Suspect]
     Indication: ANTIVIRAL PROPHYLAXIS
     Dosage: 10MG PER DAY
     Route: 055
     Dates: start: 20091203, end: 20091207
  2. INFLUENZA HA VACCINE [Concomitant]
     Indication: ANTIVIRAL PROPHYLAXIS
     Route: 065
     Dates: start: 20091203, end: 20091203
  3. CEFZON [Concomitant]
     Dosage: 3IUAX PER DAY
     Route: 048
     Dates: start: 20100209, end: 20100213
  4. FLOMOX [Concomitant]
     Dosage: 3IUAX PER DAY
     Route: 048
     Dates: start: 20100309, end: 20100313
  5. TOMIRON [Concomitant]
     Dosage: 3IUAX PER DAY
     Route: 048
     Dates: start: 20100323, end: 20100329

REACTIONS (1)
  - DRUG EXPOSURE DURING PREGNANCY [None]
